FAERS Safety Report 5334956-X (Version None)
Quarter: 2007Q1

REPORT INFORMATION
  Report Type: 
  Country: None (occurrence: None)
  Receive Date: 20070308
  Receipt Date: 20070109
  Transmission Date: 20070707
  Serious: No
  Sender: FDA-Public Use
  Company Number: 2007-BP-00464BP

PATIENT
  Sex: Female

DRUGS (1)
  1. SPIRIVA [Suspect]
     Indication: EMPHYSEMA
     Dosage: 18 MCG (18 MCG, 1 IN 1 D), IH
     Route: 055
     Dates: start: 20040101

REACTIONS (4)
  - LOCAL SWELLING [None]
  - OSTEITIS [None]
  - RHINITIS [None]
  - SJOGREN'S SYNDROME [None]
